FAERS Safety Report 16743912 (Version 1)
Quarter: 2019Q3

REPORT INFORMATION
  Report Type: Spontaneous
  Country: US (occurrence: US)
  Receive Date: 20190827
  Receipt Date: 20190827
  Transmission Date: 20191005
  Serious: Yes (Hospitalization)
  Sender: FDA-Public Use
  Company Number: US-ROCHE-2382936

PATIENT
  Sex: Male

DRUGS (10)
  1. FAMOTIDINE. [Concomitant]
     Active Substance: FAMOTIDINE
  2. MYCOPHENOLATE MOFETIL. [Concomitant]
     Active Substance: MYCOPHENOLATE MOFETIL
  3. FOLIC ACID. [Concomitant]
     Active Substance: FOLIC ACID
  4. OMEPRAZOLE. [Concomitant]
     Active Substance: OMEPRAZOLE
  5. ESBRIET [Suspect]
     Active Substance: PIRFENIDONE
     Indication: IDIOPATHIC PULMONARY FIBROSIS
     Route: 048
  6. ALBUTEROL [SALBUTAMOL] [Concomitant]
     Active Substance: ALBUTEROL
  7. ALENDRONATE [Concomitant]
     Active Substance: ALENDRONATE SODIUM
  8. MEGESTROL ACETATE. [Concomitant]
     Active Substance: MEGESTROL ACETATE
  9. BENZONATATE. [Concomitant]
     Active Substance: BENZONATATE
  10. MELOXICAM. [Concomitant]
     Active Substance: MELOXICAM

REACTIONS (1)
  - Lung neoplasm malignant [Unknown]
